FAERS Safety Report 15978940 (Version 1)
Quarter: 2019Q1

REPORT INFORMATION
  Report Type: Spontaneous
  Country: IL (occurrence: IL)
  Receive Date: 20190219
  Receipt Date: 20190219
  Transmission Date: 20190418
  Serious: Yes (Hospitalization, Other)
  Sender: FDA-Public Use
  Company Number: IL-LUPIN PHARMACEUTICALS INC.-2019-01002

PATIENT
  Age: 66 Year
  Sex: Female

DRUGS (7)
  1. AMOXYCILLIN                        /00249601/ [Concomitant]
     Active Substance: AMOXICILLIN
     Indication: HELICOBACTER INFECTION
     Dosage: 2 GRAM, QD
     Route: 065
  2. OMEPRAZOLE. [Concomitant]
     Active Substance: OMEPRAZOLE
     Indication: HELICOBACTER INFECTION
     Dosage: 40 MILLIGRAM, QD
     Route: 065
  3. LEVODOPA + CARBIDOPA + ENTACAPONA CICLUM [Concomitant]
     Indication: PARKINSON^S DISEASE
     Dosage: 1 MILLIGRAM, TID
     Route: 065
  4. LEVODOPA + CARBIDOPA + ENTACAPONA CICLUM [Concomitant]
     Dosage: 1 MILLIGRAM, TID (RENEWED)
     Route: 065
  5. CLARITHROMYCIN. [Suspect]
     Active Substance: CLARITHROMYCIN
     Indication: HELICOBACTER INFECTION
     Dosage: 500 MILLIGRAM, QD
     Route: 065
  6. OMEPRAZOLE. [Concomitant]
     Active Substance: OMEPRAZOLE
     Indication: ULCER
  7. RASAGILINE. [Concomitant]
     Active Substance: RASAGILINE
     Indication: PARKINSON^S DISEASE
     Dosage: UNK
     Route: 065

REACTIONS (2)
  - Drug interaction [Unknown]
  - Mania [Recovered/Resolved]
